FAERS Safety Report 9604201 (Version 1)
Quarter: 2013Q4

REPORT INFORMATION
  Report Type: Spontaneous
  Country: PH (occurrence: PH)
  Receive Date: 20131008
  Receipt Date: 20131008
  Transmission Date: 20140711
  Serious: Yes (Death)
  Sender: FDA-Public Use
  Company Number: PH-MERCK-1310PHL002797

PATIENT
  Age: 54 Year
  Sex: Male

DRUGS (1)
  1. JANUMET [Suspect]
     Dosage: 1 TABLET ONCE A DAY
     Route: 048
     Dates: end: 201308

REACTIONS (2)
  - Diabetic complication [Fatal]
  - Inappropriate schedule of drug administration [Unknown]
